FAERS Safety Report 7554887-4 (Version None)
Quarter: 2011Q2

REPORT INFORMATION
  Report Type: 
  Country: None (occurrence: None)
  Receive Date: 20110615
  Receipt Date: 20110615
  Transmission Date: 20111010
  Serious: Yes (Other)
  Sender: FDA-Public Use
  Company Number: None

PATIENT
  Age: 51 Year
  Sex: Male

DRUGS (6)
  1. GLIPIZIDE [Concomitant]
  2. METFORMIN HCL [Concomitant]
  3. REVLIMID [Suspect]
     Dosage: 15 MG DAILY X21D/28D ORALLY
     Route: 048
     Dates: start: 20100901
  4. REVLIMID [Suspect]
     Indication: MULTIPLE MYELOMA
     Dosage: 25 MG DAILY X21D/28D ORALLY
     Route: 048
     Dates: start: 20100801
  5. NIACIN [Concomitant]
  6. ONDANSETRON [Concomitant]

REACTIONS (5)
  - FATIGUE [None]
  - ARTHRALGIA [None]
  - HYPOAESTHESIA [None]
  - PARAESTHESIA [None]
  - HYPERHIDROSIS [None]
